FAERS Safety Report 4764882-6 (Version None)
Quarter: 2005Q3

REPORT INFORMATION
  Report Type: 
  Country: None (occurrence: None)
  Receive Date: 20050909
  Receipt Date: 20050831
  Transmission Date: 20060218
  Serious: Yes (Death)
  Sender: FDA-Public Use
  Company Number: CN-JNJFOC-20050900775

PATIENT
  Sex: Female

DRUGS (3)
  1. GYNO-DAKTARIN [Suspect]
     Route: 067
  2. CLARITHROMYCIN [Concomitant]
     Indication: MYCOPLASMA INFECTION
     Route: 048
  3. AZITHROMYCIN [Concomitant]
     Indication: MYCOPLASMA INFECTION
     Route: 048

REACTIONS (2)
  - DRUG EXPOSURE DURING PREGNANCY [None]
  - INTRA-UTERINE DEATH [None]
